FAERS Safety Report 10763316 (Version 1)
Quarter: 2015Q1

REPORT INFORMATION
  Report Type: Spontaneous
  Country: US (occurrence: None)
  Receive Date: 20150129
  Receipt Date: 20150129
  Transmission Date: 20150721
  Serious: Yes (Hospitalization)
  Sender: FDA-Public Use
  Company Number: 2014016960

PATIENT
  Age: 37 Year
  Sex: Female
  Weight: 81.6 kg

DRUGS (3)
  1. DEPAKOTE [Concomitant]
     Active Substance: DIVALPROEX SODIUM
  2. KEPPRA XR [Suspect]
     Active Substance: LEVETIRACETAM
     Indication: SEIZURE
  3. VIMPAT [Suspect]
     Active Substance: LACOSAMIDE
     Indication: PRODUCT USED FOR UNKNOWN INDICATION
     Dates: start: 201408

REACTIONS (5)
  - Inappropriate schedule of drug administration [None]
  - Full blood count decreased [None]
  - Partial seizures [None]
  - Seizure [None]
  - Haemoglobin decreased [None]

NARRATIVE: CASE EVENT DATE: 201408
